FAERS Safety Report 14159031 (Version 2)
Quarter: 2017Q4

REPORT INFORMATION
  Report Type: Spontaneous
  Country: IN (occurrence: IN)
  Receive Date: 20171106
  Receipt Date: 20171205
  Transmission Date: 20180321
  Serious: Yes (Hospitalization, Other)
  Sender: FDA-Public Use
  Company Number: IN-ALVOGEN-2017-ALVOGEN-093931

PATIENT
  Age: 4 Year
  Sex: Female
  Weight: 24 kg

DRUGS (1)
  1. OFLOXACIN. [Suspect]
     Active Substance: OFLOXACIN
     Indication: GASTROENTERITIS
     Dosage: PRESCRIBED DOSE: ORAL OFLOXACIN 400 MG, 1/4 TABLET TWICE DAILY.
     Route: 048

REACTIONS (3)
  - Incorrect dose administered [Recovered/Resolved]
  - Accidental overdose [Recovered/Resolved]
  - Delirium [Recovered/Resolved]
